FAERS Safety Report 11438234 (Version 2)
Quarter: 2016Q1

REPORT INFORMATION
  Report Type: Report from Study
  Country: US (occurrence: US)
  Receive Date: 20150901
  Receipt Date: 20160205
  Transmission Date: 20160525
  Serious: No
  Sender: FDA-Public Use
  Company Number: PHEH2013US013234

PATIENT
  Age: 19 Year
  Sex: Female
  Weight: 63.49 kg

DRUGS (2)
  1. TRILEPTAL [Concomitant]
     Active Substance: OXCARBAZEPINE
     Indication: SEIZURE
     Dosage: UNK UKN, UNK
     Route: 048
  2. AFINITOR [Suspect]
     Active Substance: EVEROLIMUS
     Indication: ANGIOMYOLIPOMA
     Dosage: 10 MG, QD
     Route: 048
     Dates: start: 20130612

REACTIONS (12)
  - Contusion [Not Recovered/Not Resolved]
  - Rhinorrhoea [Unknown]
  - Dizziness [Unknown]
  - Nausea [Unknown]
  - Mouth ulceration [Unknown]
  - Menstruation delayed [Unknown]
  - Oral pain [Unknown]
  - Vitamin D decreased [Unknown]
  - Paraesthesia [Unknown]
  - Gingival erythema [Unknown]
  - Alopecia [Not Recovered/Not Resolved]
  - Menstruation irregular [Unknown]

NARRATIVE: CASE EVENT DATE: 20130613
